FAERS Safety Report 10666600 (Version 1)
Quarter: 2014Q4

REPORT INFORMATION
  Report Type: Spontaneous
  Country: US (occurrence: US)
  Receive Date: 20141221
  Receipt Date: 20141221
  Transmission Date: 20150529
  Serious: Yes (Life-Threatening, Hospitalization)
  Sender: FDA-Public Use
  Company Number: US-JNJFOC-20141212623

PATIENT
  Age: 49 Year
  Sex: Female

DRUGS (3)
  1. PROPRANOLOL [Suspect]
     Active Substance: PROPRANOLOL\PROPRANOLOL HYDROCHLORIDE
     Indication: HYPERTHYROIDISM
     Route: 065
  2. PROPYLTHIOURACIL. [Suspect]
     Active Substance: PROPYLTHIOURACIL
     Indication: HYPERTHYROIDISM
     Route: 065
  3. HYDROCORTISONE. [Suspect]
     Active Substance: HYDROCORTISONE
     Indication: HYPERTHYROIDISM
     Route: 065

REACTIONS (9)
  - Hepatitis acute [Unknown]
  - Basedow^s disease [Recovered/Resolved]
  - Hepatic failure [Recovered/Resolved]
  - Respiratory failure [Unknown]
  - Cardiac failure [Recovered/Resolved]
  - Cardiogenic shock [Unknown]
  - Thyrotoxic crisis [Unknown]
  - Disseminated intravascular coagulation [Unknown]
  - Product use issue [Unknown]
